FAERS Safety Report 21865362 (Version 1)
Quarter: 2023Q1

REPORT INFORMATION
  Report Type: Report from Study
  Country: US (occurrence: US)
  Receive Date: 20230116
  Receipt Date: 20230116
  Transmission Date: 20230417
  Serious: No
  Sender: FDA-Public Use
  Company Number: US-ABBVIE-4234820

PATIENT
  Sex: Female

DRUGS (4)
  1. RINVOQ [Suspect]
     Active Substance: UPADACITINIB
     Indication: Rheumatoid arthritis
     Route: 048
  2. Pfizer/BioNTech [Concomitant]
     Indication: COVID-19 immunisation
     Dosage: FIRST DOSE, 1 IN 1 DAY
     Route: 030
     Dates: start: 20210302, end: 20210302
  3. Pfizer/BioNTech [Concomitant]
     Indication: COVID-19 immunisation
     Dosage: SECOND DOSE, 1 IN 1 DAY
     Route: 030
     Dates: start: 20210405, end: 20210405
  4. Pfizer/BioNTech [Concomitant]
     Indication: COVID-19 immunisation
     Dosage: THIRD DOSE, 1 IN 1 DAY
     Route: 030
     Dates: start: 20210721, end: 20210721

REACTIONS (1)
  - COVID-19 [Recovering/Resolving]
